FAERS Safety Report 8267587-2 (Version None)
Quarter: 2012Q2

REPORT INFORMATION
  Report Type: 
  Country: None (occurrence: None)
  Receive Date: 20120409
  Receipt Date: 20120327
  Transmission Date: 20120825
  Serious: Yes (Other)
  Sender: FDA-Public Use
  Company Number: GB-ELI_LILLY_AND_COMPANY-GB201203008259

PATIENT
  Age: 42 Year
  Sex: Female
  Weight: 43.55 kg

DRUGS (8)
  1. LANTUS [Concomitant]
     Dosage: UNK
     Dates: start: 20120103, end: 20120131
  2. ACETAMINOPHEN [Concomitant]
     Dosage: UNK
     Dates: start: 20120103, end: 20120115
  3. TRAMADOL HCL [Concomitant]
     Dosage: UNK
     Dates: start: 20111214, end: 20120131
  4. LORATADINE [Concomitant]
     Dosage: UNK
     Dates: start: 20120103, end: 20120202
  5. VITAMIN B COMPLEX CAP [Concomitant]
     Dosage: UNK
     Dates: start: 20111214, end: 20120131
  6. FLUOXETINE [Suspect]
     Dosage: UNK
     Route: 065
     Dates: start: 20120103
  7. MS CONTIN [Concomitant]
     Dosage: UNK
     Dates: start: 20111117, end: 20120202
  8. ALBUTEROL [Concomitant]
     Dosage: UNK
     Dates: start: 20120103, end: 20120131

REACTIONS (2)
  - PANCREATITIS [None]
  - ABDOMINAL PAIN UPPER [None]
